FAERS Safety Report 7751113-8 (Version None)
Quarter: 2011Q3

REPORT INFORMATION
  Report Type: 
  Country: None (occurrence: None)
  Receive Date: 20110914
  Receipt Date: 20110912
  Transmission Date: 20111222
  Serious: Yes (Hospitalization, Other)
  Sender: FDA-Public Use
  Company Number: US-PURDUE-USA-2011-0074523

PATIENT
  Age: 24 Year
  Sex: Male

DRUGS (1)
  1. OXYCODONE HCL [Suspect]
     Indication: DRUG ABUSE
     Dosage: UNK

REACTIONS (6)
  - DRUG DEPENDENCE [None]
  - EUPHORIC MOOD [None]
  - ENDOCARDITIS [None]
  - PYREXIA [None]
  - DRUG ABUSE [None]
  - CARDIAC VALVE RUPTURE [None]
